FAERS Safety Report 7413025-9 (Version None)
Quarter: 2011Q2

REPORT INFORMATION
  Report Type: 
  Country: None (occurrence: None)
  Receive Date: 20110413
  Receipt Date: 20110404
  Transmission Date: 20111010
  Serious: Yes (Other)
  Sender: FDA-Public Use
  Company Number: ES-ASTRAZENECA-2011SE19166

PATIENT
  Age: 1 Year
  Sex: Male

DRUGS (1)
  1. MERONEM [Suspect]
     Indication: URINARY TRACT INFECTION ENTEROCOCCAL
     Route: 042
     Dates: start: 20110302, end: 20110306

REACTIONS (1)
  - HEPATITIS [None]
